FAERS Safety Report 18740848 (Version 1)
Quarter: 2021Q1

REPORT INFORMATION
  Report Type: Spontaneous
  Country: US (occurrence: US)
  Receive Date: 20210114
  Receipt Date: 20210114
  Transmission Date: 20210419
  Serious: Yes (Other)
  Sender: FDA-Public Use
  Company Number: None

PATIENT
  Age: 52 Year
  Sex: Female
  Weight: 79.83 kg

DRUGS (2)
  1. FLUTICASONE?SALMETEROL DISKUS [Concomitant]
     Dates: start: 20201130, end: 20201208
  2. FLUTICASONE PROPIONATE AND SALMETEROL DISKUS [Suspect]
     Active Substance: FLUTICASONE PROPIONATE\SALMETEROL XINAFOATE
     Indication: ASTHMA
     Dates: start: 20201130, end: 20201208

REACTIONS (1)
  - Asthma [None]

NARRATIVE: CASE EVENT DATE: 20201130
